FAERS Safety Report 13290713 (Version 2)
Quarter: 2017Q2

REPORT INFORMATION
  Report Type: Spontaneous
  Country: US (occurrence: US)
  Receive Date: 20170303
  Receipt Date: 20170417
  Transmission Date: 20170830
  Serious: No
  Sender: FDA-Public Use
  Company Number: US-PFIZER INC-2017088785

PATIENT
  Sex: Female

DRUGS (1)
  1. XELJANZ XR [Suspect]
     Active Substance: TOFACITINIB CITRATE
     Indication: RHEUMATOID ARTHRITIS
     Dosage: 11 MG, DAILY

REACTIONS (12)
  - Drug effect incomplete [Unknown]
  - Muscle spasms [Unknown]
  - Paraesthesia [Unknown]
  - Joint swelling [Unknown]
  - Nail pitting [Unknown]
  - Rash [Unknown]
  - Musculoskeletal stiffness [Unknown]
  - Psoriasis [Unknown]
  - Musculoskeletal discomfort [Unknown]
  - Joint range of motion decreased [Unknown]
  - Hypoaesthesia [Unknown]
  - Neck pain [Unknown]
